FAERS Safety Report 21153909 (Version 2)
Quarter: 2022Q3

REPORT INFORMATION
  Report Type: Spontaneous
  Country: JP (occurrence: JP)
  Receive Date: 20220801
  Receipt Date: 20220906
  Transmission Date: 20221027
  Serious: Yes (Other)
  Sender: FDA-Public Use
  Company Number: JP-NOVARTISPH-NVSJ2022JP093389

PATIENT
  Age: 74 Year
  Sex: Male
  Weight: 54.2 kg

DRUGS (10)
  1. ENTRESTO [Suspect]
     Active Substance: SACUBITRIL\VALSARTAN
     Indication: Cardiac failure congestive
     Dosage: 50 MG, BID
     Route: 048
     Dates: start: 20220506, end: 20220527
  2. ALFAROL [Concomitant]
     Active Substance: ALFACALCIDOL
     Indication: Hyperparathyroidism secondary
     Dosage: 0.5 MG, QD
     Route: 048
  3. RIVOTRIL [Concomitant]
     Active Substance: CLONAZEPAM
     Indication: Restless legs syndrome
     Dosage: 0.5 MG, QD
     Route: 048
  4. VONOPRAZAN FUMARATE [Concomitant]
     Active Substance: VONOPRAZAN FUMARATE
     Indication: Gastrointestinal disorder prophylaxis
     Dosage: 10 MG, QD
     Route: 048
  5. EDOXABAN TOSYLATE [Concomitant]
     Active Substance: EDOXABAN TOSYLATE
     Indication: Atrial fibrillation
     Dosage: 15 MG, QD
     Route: 048
  6. PILSICAINIDE HYDROCHLORIDE [Concomitant]
     Active Substance: PILSICAINIDE HYDROCHLORIDE
     Indication: Atrial fibrillation
     Dosage: 25 MG, QD
     Route: 048
     Dates: start: 2020
  7. PILSICAINIDE HYDROCHLORIDE [Concomitant]
     Active Substance: PILSICAINIDE HYDROCHLORIDE
     Indication: Cardiac valve disease
  8. FERRIC HYDROXIDE [Concomitant]
     Active Substance: FERRIC HYDROXIDE
     Indication: Hyperphosphataemia
     Dosage: 750 MG
     Route: 048
  9. EVOCALCET [Concomitant]
     Active Substance: EVOCALCET
     Indication: Hyperparathyroidism secondary
     Dosage: 2 MG, QD
     Route: 048
  10. CALCIUM CARBONATE [Concomitant]
     Active Substance: CALCIUM CARBONATE
     Indication: Hyperphosphataemia
     Dosage: 500 MG, BID
     Route: 048

REACTIONS (6)
  - Tachycardia [Recovered/Resolved]
  - Dizziness [Unknown]
  - Blood pressure decreased [Recovered/Resolved]
  - Supraventricular extrasystoles [Recovered/Resolved]
  - Chest discomfort [Unknown]
  - Weight increased [Unknown]

NARRATIVE: CASE EVENT DATE: 20220520
